FAERS Safety Report 6655635-2 (Version None)
Quarter: 2010Q1

REPORT INFORMATION
  Report Type: 
  Country: None (occurrence: None)
  Receive Date: 20100326
  Receipt Date: 20100326
  Transmission Date: 20100710
  Serious: Yes (Hospitalization)
  Sender: FDA-Public Use
  Company Number: None

PATIENT
  Sex: Female
  Weight: 67.4 kg

DRUGS (7)
  1. CISPLATIN [Suspect]
     Dosage: MG
     Dates: end: 20100317
  2. TAXOL [Suspect]
     Dosage: 332 MG
     Dates: end: 20100317
  3. ATENOLOL-CHLORTHAIZIDE [Concomitant]
  4. CALCIUM CARBONATE [Concomitant]
  5. FISH OIL OMEGA 3 [Concomitant]
  6. OMEPRAZOLE [Concomitant]
  7. VITAMIN D3 [Concomitant]

REACTIONS (7)
  - BAND NEUTROPHIL COUNT DECREASED [None]
  - DECREASED APPETITE [None]
  - DEHYDRATION [None]
  - DIARRHOEA [None]
  - HYPOKALAEMIA [None]
  - HYPOMAGNESAEMIA [None]
  - PLATELET COUNT DECREASED [None]
